FAERS Safety Report 9530236 (Version 1)
Quarter: 2013Q3

REPORT INFORMATION
  Report Type: Spontaneous
  Country: US (occurrence: US)
  Receive Date: 20130917
  Receipt Date: 20130917
  Transmission Date: 20140515
  Serious: No
  Sender: FDA-Public Use
  Company Number: US-009507513-1309USA006740

PATIENT
  Sex: Male

DRUGS (1)
  1. JANUMET [Suspect]
     Dosage: 50/1000 MG (FREQUENCY UNSPECIFIED)
     Route: 048

REACTIONS (1)
  - Diarrhoea [Unknown]
